FAERS Safety Report 9730494 (Version 3)
Quarter: 2014Q1

REPORT INFORMATION
  Report Type: Spontaneous
  Country: DE (occurrence: DE)
  Receive Date: 20131202
  Receipt Date: 20140116
  Transmission Date: 20141002
  Serious: Yes (Other)
  Sender: FDA-Public Use
  Company Number: DE-BAYER-2013-120964

PATIENT
  Age: 72 Year
  Sex: Male

DRUGS (5)
  1. CIPROBAY [Suspect]
     Indication: PROSTATITIS ESCHERICHIA COLI
     Dosage: 500 MG, BID
     Dates: start: 201304
  2. IBUPROFEN [Suspect]
     Indication: JOINT SWELLING
     Dosage: UNK
     Dates: start: 20130806
  3. IBUPROFEN [Suspect]
     Indication: JOINT SWELLING
     Dosage: UNK
     Dates: start: 20131005
  4. COTRIM [Concomitant]
  5. CEFUROXIM [Concomitant]

REACTIONS (15)
  - Joint swelling [None]
  - Joint swelling [None]
  - Local swelling [None]
  - Joint swelling [None]
  - Erythema [Recovering/Resolving]
  - Exostosis [Recovered/Resolved]
  - Exostosis [Recovered/Resolved]
  - Joint swelling [None]
  - Joint swelling [None]
  - Erythema [None]
  - Arthralgia [Recovered/Resolved]
  - Diarrhoea [None]
  - Joint swelling [None]
  - Burning sensation [None]
  - Gait disturbance [None]
